FAERS Safety Report 5925691-5 (Version None)
Quarter: 2008Q4

REPORT INFORMATION
  Report Type: 
  Country: None (occurrence: None)
  Receive Date: 20081021
  Receipt Date: 20081014
  Transmission Date: 20090506
  Serious: Yes (Hospitalization)
  Sender: FDA-Public Use
  Company Number: US-CELGENEUS-163-21880-08100999

PATIENT
  Sex: Female

DRUGS (3)
  1. REVLIMID [Suspect]
     Route: 048
     Dates: start: 20080512
  2. REVLIMID [Suspect]
     Route: 048
     Dates: start: 20071214
  3. CHEMOTHERAPY [Concomitant]
     Route: 051

REACTIONS (1)
  - MENINGITIS [None]
